FAERS Safety Report 11699958 (Version 1)
Quarter: 2015Q4

REPORT INFORMATION
  Report Type: Spontaneous
  Country: US (occurrence: US)
  Receive Date: 20151105
  Receipt Date: 20151105
  Transmission Date: 20160304
  Serious: No
  Sender: FDA-Public Use
  Company Number: US-SUN PHARMACEUTICAL INDUSTRIES LTD-2015SUN00467

PATIENT

DRUGS (5)
  1. ACCURETIC [Concomitant]
     Active Substance: HYDROCHLOROTHIAZIDE\QUINAPRIL HYDROCHLORIDE
     Dosage: 25 MG, IN THE MORNING
  2. VITAMINS [Concomitant]
     Active Substance: VITAMINS
  3. TAPROL [Concomitant]
     Dosage: 25 MG, IN THE EVENING
  4. ZOCOR [Concomitant]
     Active Substance: SIMVASTATIN
     Dosage: 10 MG, OD
  5. ALENDRONATE SODIUM 35MG TABLET [Suspect]
     Active Substance: ALENDRONATE SODIUM
     Indication: OSTEOPENIA
     Dosage: 35 MG, WEEKLY
     Route: 048
     Dates: start: 2001, end: 20150201

REACTIONS (4)
  - Pain in extremity [Unknown]
  - Pain in extremity [None]
  - Arthralgia [Unknown]
  - Peripheral swelling [Unknown]

NARRATIVE: CASE EVENT DATE: 201412
